FAERS Safety Report 17229037 (Version 4)
Quarter: 2020Q3

REPORT INFORMATION
  Report Type: Report from Study
  Country: BR (occurrence: BR)
  Receive Date: 20200103
  Receipt Date: 20200901
  Transmission Date: 20201102
  Serious: Yes (Disabling, Other)
  Sender: FDA-Public Use
  Company Number: PHHY2018BR157895

PATIENT
  Age: 40 Year
  Sex: Male
  Weight: 94 kg

DRUGS (3)
  1. COSENTYX [Suspect]
     Active Substance: SECUKINUMAB
     Indication: PSORIATIC ARTHROPATHY
     Dosage: 300 MG, QMO
     Route: 058
     Dates: start: 20180108
  2. COSENTYX [Suspect]
     Active Substance: SECUKINUMAB
     Dosage: UNK
     Route: 058
     Dates: start: 20190913
  3. COSENTYX [Suspect]
     Active Substance: SECUKINUMAB
     Dosage: 300 MG, QMO
     Route: 058
     Dates: start: 201909

REACTIONS (20)
  - Spondylitis [Not Recovered/Not Resolved]
  - Oedema [Unknown]
  - Psoriatic arthropathy [Unknown]
  - Arthralgia [Not Recovered/Not Resolved]
  - Impaired quality of life [Unknown]
  - Spinal pain [Not Recovered/Not Resolved]
  - Arthritis [Recovered/Resolved with Sequelae]
  - Gait inability [Not Recovered/Not Resolved]
  - Spinal cord injury [Not Recovered/Not Resolved]
  - Back pain [Recovered/Resolved with Sequelae]
  - Joint injury [Not Recovered/Not Resolved]
  - Malaise [Recovering/Resolving]
  - Arthralgia [Recovering/Resolving]
  - Skin lesion [Not Recovered/Not Resolved]
  - Oedema peripheral [Unknown]
  - Pain [Not Recovered/Not Resolved]
  - Contusion [Not Recovered/Not Resolved]
  - Musculoskeletal stiffness [Recovering/Resolving]
  - Pain in extremity [Not Recovered/Not Resolved]
  - Macule [Not Recovered/Not Resolved]

NARRATIVE: CASE EVENT DATE: 2019
